FAERS Safety Report 11418505 (Version 1)
Quarter: 2015Q3

REPORT INFORMATION
  Report Type: Spontaneous
  Country: US (occurrence: US)
  Receive Date: 20150826
  Receipt Date: 20150826
  Transmission Date: 20151125
  Serious: Yes (Hospitalization)
  Sender: FDA-Public Use
  Company Number: US-AUROBINDO-AUR-APL-2015-07324

PATIENT
  Age: 87 Year
  Sex: Male

DRUGS (2)
  1. AMOXICILLIN CLAVULANIC ACID [Concomitant]
     Active Substance: AMOXICILLIN\CLAVULANIC ACID
     Indication: PRODUCT USED FOR UNKNOWN INDICATION
     Dosage: 875 MG, UNK
     Route: 048
  2. MINOCYCLINE [Suspect]
     Active Substance: MINOCYCLINE\MINOCYCLINE HYDROCHLORIDE
     Indication: PRODUCT USED FOR UNKNOWN INDICATION
     Route: 065

REACTIONS (21)
  - Sepsis [Recovered/Resolved]
  - Erythema [Recovered/Resolved]
  - Pneumothorax [Recovered/Resolved]
  - Pyrexia [Recovered/Resolved]
  - Eosinophilic pneumonia acute [Recovered/Resolved]
  - Diarrhoea [Recovered/Resolved]
  - Blood creatine increased [Recovered/Resolved]
  - Leukocytosis [Recovered/Resolved]
  - Oedema peripheral [Recovered/Resolved]
  - Arthralgia [Recovered/Resolved]
  - Ligament sprain [Recovered/Resolved]
  - Hypotension [Recovered/Resolved]
  - Tachypnoea [Recovered/Resolved]
  - Acute kidney injury [Recovered/Resolved]
  - Eosinophilia [Recovered/Resolved]
  - Alveolar lung disease [Recovered/Resolved]
  - Pleural effusion [Recovered/Resolved]
  - Tachycardia [Recovered/Resolved]
  - Lung infiltration [Recovered/Resolved]
  - Pneumonia [Recovered/Resolved]
  - Hypoxia [Recovered/Resolved]
